FAERS Safety Report 16398557 (Version 1)
Quarter: 2019Q2

REPORT INFORMATION
  Report Type: Spontaneous
  Country: US (occurrence: US)
  Receive Date: 20190501
  Receipt Date: 20190501
  Transmission Date: 20190711
  Serious: Yes (Hospitalization)
  Sender: FDA-Public Use
  Company Number: None

PATIENT
  Age: 39 Year
  Sex: Female
  Weight: 71.8 kg

DRUGS (1)
  1. TEGASEROD [Suspect]
     Active Substance: TEGASEROD
     Indication: IRRITABLE BOWEL SYNDROME
     Route: 048
     Dates: start: 20161104

REACTIONS (2)
  - Pulmonary embolism [None]
  - Disease recurrence [None]

NARRATIVE: CASE EVENT DATE: 20190101
